FAERS Safety Report 19056455 (Version 1)
Quarter: 2021Q1

REPORT INFORMATION
  Report Type: Spontaneous
  Country: GB (occurrence: GB)
  Receive Date: 20210324
  Receipt Date: 20210324
  Transmission Date: 20210420
  Serious: Yes (Other)
  Sender: FDA-Public Use
  Company Number: GB-TEVA-2021-GB-1892826

PATIENT
  Age: 66 Year
  Sex: Male

DRUGS (4)
  1. GALANTAMINE. [Suspect]
     Active Substance: GALANTAMINE
     Indication: SCHIZOPHRENIA
     Route: 065
  2. PALIPERIDONE. [Suspect]
     Active Substance: PALIPERIDONE
     Indication: SCHIZOPHRENIA
     Route: 065
  3. GALANTAMINE. [Suspect]
     Active Substance: GALANTAMINE
     Route: 065
  4. PALIPERIDONE. [Suspect]
     Active Substance: PALIPERIDONE
     Route: 065

REACTIONS (1)
  - Dementia Alzheimer^s type [Unknown]
